FAERS Safety Report 9130241 (Version 1)
Quarter: 2013Q1

REPORT INFORMATION
  Report Type: Spontaneous
  Country: US (occurrence: US)
  Receive Date: 20130228
  Receipt Date: 20130228
  Transmission Date: 20140127
  Serious: Yes (Hospitalization)
  Sender: FDA-Public Use
  Company Number: US-B.I. PHARMACEUTICALS,INC./RIDGEFIELD-2006-BP-11507BP

PATIENT
  Sex: Male

DRUGS (41)
  1. MIRAPEX [Suspect]
     Indication: PARKINSON^S DISEASE
     Route: 048
     Dates: start: 19970811, end: 200506
  2. SINEMET [Concomitant]
     Indication: PARKINSON^S DISEASE
  3. LEVODOPA/L.DOPA [Concomitant]
  4. REQUIP [Concomitant]
  5. AMANTADINE [Concomitant]
     Dates: start: 1993
  6. ELDEPRYL [Concomitant]
  7. SELEGILINE [Concomitant]
  8. KEFLEX [Concomitant]
  9. MOTRIN [Concomitant]
  10. EFFEXOR [Concomitant]
     Dates: start: 1999
  11. CELEXA [Concomitant]
  12. TRAZODONE [Concomitant]
  13. TYLENOL [Concomitant]
     Dates: start: 200003
  14. MAALOX [Concomitant]
  15. BENTYL [Concomitant]
     Dates: start: 200003
  16. REMERON [Concomitant]
  17. FLEXERIL [Concomitant]
  18. NAPROXEN [Concomitant]
  19. WELLBUTRIN SR [Concomitant]
     Dates: start: 2001
  20. ZOLOFT [Concomitant]
  21. SERZONE [Concomitant]
  22. VIAGRA [Concomitant]
     Dates: start: 2004
  23. LEXAPRO [Concomitant]
  24. ZITHROMAX [Concomitant]
  25. FLONASE [Concomitant]
  26. Z-PACK [Concomitant]
  27. RYNATAN [Concomitant]
  28. PAXIL CR [Concomitant]
  29. COMTAN [Concomitant]
  30. ARTANE [Concomitant]
     Dates: start: 2006
  31. ULTRAM [Concomitant]
  32. IBUPROFEN [Concomitant]
  33. CLARITIN [Concomitant]
  34. LEVAQUIN [Concomitant]
  35. TUSSI-12D [Concomitant]
  36. CARBIDOPA/LEVODOPA [Concomitant]
     Dates: start: 2005
  37. MYLANTA LIQUID [Concomitant]
     Dates: start: 200003
  38. THERAGRAN [Concomitant]
     Dates: start: 200003
  39. TYLENOL EX-STRENGTH [Concomitant]
     Dates: start: 200003
  40. SYMADINE [Concomitant]
     Indication: BALANCE DISORDER
     Dates: start: 1999
  41. SYMADINE [Concomitant]
     Indication: MUSCLE RIGIDITY

REACTIONS (8)
  - Major depression [Unknown]
  - Suicidal ideation [Recovered/Resolved]
  - Pathological gambling [Recovered/Resolved]
  - Obsessive-compulsive disorder [Recovered/Resolved]
  - Compulsive shopping [Recovered/Resolved]
  - Hypersexuality [Recovered/Resolved]
  - Injury [Unknown]
  - Emotional distress [Unknown]
